FAERS Safety Report 10582831 (Version 2)
Quarter: 2014Q4

REPORT INFORMATION
  Report Type: Spontaneous
  Country: US (occurrence: US)
  Receive Date: 20141114
  Receipt Date: 20141223
  Transmission Date: 20150529
  Serious: Yes (Hospitalization, Other)
  Sender: FDA-Public Use
  Company Number: US-AMGEN-USASP2014086748

PATIENT
  Age: 54 Year
  Sex: Female

DRUGS (2)
  1. NEURONTIN [Suspect]
     Active Substance: GABAPENTIN
     Indication: NEURALGIA
     Dosage: UNK
     Route: 065
  2. ENBREL [Suspect]
     Active Substance: ETANERCEPT
     Indication: PSORIATIC ARTHROPATHY
     Dosage: 50 MG, QWK
     Route: 065
     Dates: start: 20130101

REACTIONS (20)
  - Nodule [Not Recovered/Not Resolved]
  - Fatigue [Not Recovered/Not Resolved]
  - Urinary tract infection [Recovered/Resolved]
  - Chills [Recovering/Resolving]
  - Drug hypersensitivity [Not Recovered/Not Resolved]
  - Amnesia [Not Recovered/Not Resolved]
  - Sinusitis [Recovered/Resolved]
  - Neuralgia [Recovering/Resolving]
  - Hypertension [Recovered/Resolved]
  - Anxiety [Recovered/Resolved]
  - Self-injurious ideation [Recovering/Resolving]
  - Depression [Recovering/Resolving]
  - Psoriatic arthropathy [Not Recovered/Not Resolved]
  - Tremor [Recovering/Resolving]
  - Feeling cold [Recovering/Resolving]
  - Paraesthesia [Recovering/Resolving]
  - Injection site bruising [Not Recovered/Not Resolved]
  - Cough [Recovering/Resolving]
  - Asthenia [Not Recovered/Not Resolved]
  - Injection site injury [Not Recovered/Not Resolved]

NARRATIVE: CASE EVENT DATE: 2013
